FAERS Safety Report 17458201 (Version 3)
Quarter: 2022Q3

REPORT INFORMATION
  Report Type: Spontaneous
  Country: US (occurrence: US)
  Receive Date: 20200225
  Receipt Date: 20220708
  Transmission Date: 20221027
  Serious: Yes (Hospitalization)
  Sender: FDA-Public Use
  Company Number: US-SHIRE-US202006785

PATIENT
  Age: 77 Year
  Sex: Female
  Weight: 73 kg

DRUGS (2)
  1. GAMMAGARD LIQUID [Suspect]
     Active Substance: HUMAN IMMUNOGLOBULIN G
     Indication: Immune thrombocytopenia
     Dosage: 30 GRAM, QD
     Route: 065
     Dates: start: 20200215, end: 20200219
  2. GAMMAGARD LIQUID [Suspect]
     Active Substance: HUMAN IMMUNOGLOBULIN G
     Dosage: UNK
     Route: 065
     Dates: start: 20200218

REACTIONS (5)
  - International normalised ratio increased [Unknown]
  - Platelet count decreased [Unknown]
  - Infusion related reaction [Recovered/Resolved]
  - Infusion site pain [Recovered/Resolved]
  - Pain in extremity [Recovered/Resolved]

NARRATIVE: CASE EVENT DATE: 20200218
